FAERS Safety Report 10207312 (Version 1)
Quarter: 2014Q2

REPORT INFORMATION
  Report Type: Spontaneous
  Country: US (occurrence: US)
  Receive Date: 20140530
  Receipt Date: 20140530
  Transmission Date: 20141212
  Serious: No
  Sender: FDA-Public Use
  Company Number: US-GLAXOSMITHKLINE-A1033113A

PATIENT
  Age: 69 Year
  Sex: Female

DRUGS (6)
  1. VENTOLIN [Suspect]
     Indication: CHRONIC OBSTRUCTIVE PULMONARY DISEASE
     Dosage: 2PUFF AS REQUIRED
     Route: 055
     Dates: start: 201302
  2. POTASSIUM [Concomitant]
  3. FOSAMAX [Concomitant]
  4. DILTIAZEM [Concomitant]
  5. SPIRIVA [Concomitant]
  6. AMBIEN [Concomitant]

REACTIONS (2)
  - Drug ineffective [Unknown]
  - Product quality issue [Unknown]
